FAERS Safety Report 6881324-5 (Version None)
Quarter: 2010Q3

REPORT INFORMATION
  Report Type: 
  Country: None (occurrence: None)
  Receive Date: 20100728
  Receipt Date: 20100723
  Transmission Date: 20110219
  Serious: Yes (Hospitalization, Other)
  Sender: FDA-Public Use
  Company Number: US-AMGEN-QUU416972

PATIENT
  Sex: Male
  Weight: 107.6 kg

DRUGS (22)
  1. NPLATE [Suspect]
     Indication: IDIOPATHIC THROMBOCYTOPENIC PURPURA
     Route: 058
     Dates: start: 20100403, end: 20100611
  2. CELLCEPT [Concomitant]
  3. GLUCOPHAGE [Concomitant]
     Dates: start: 20060501
  4. PRILOSEC [Concomitant]
     Dates: start: 20070501
  5. DIOVAN [Concomitant]
  6. LASIX [Concomitant]
     Dates: start: 20050502
  7. CALCIUM [Concomitant]
     Dates: start: 20061115
  8. OXYCODONE HCL [Concomitant]
  9. IRON [Concomitant]
     Dates: start: 20070501
  10. ZYRTEC [Concomitant]
  11. LEVOXYL [Concomitant]
  12. VITAMIN D [Concomitant]
     Dates: start: 20060515
  13. UNSPECIFIED MEDICATION [Concomitant]
  14. RITUXAN [Concomitant]
  15. PREDNISONE [Concomitant]
     Dates: start: 20100402
  16. POLYGAM S/D [Concomitant]
  17. NORMAL SALINE [Concomitant]
  18. BENADRYL [Concomitant]
  19. ACETAMINOPHEN [Concomitant]
  20. DECADRON [Concomitant]
     Route: 042
  21. CORTICOSTEROIDS [Concomitant]
  22. TRILIPIX [Concomitant]

REACTIONS (7)
  - ACUTE MYELOID LEUKAEMIA [None]
  - DYSPNOEA [None]
  - HYPERHIDROSIS [None]
  - MALAISE [None]
  - NORMOCHROMIC NORMOCYTIC ANAEMIA [None]
  - SPINAL LAMINECTOMY [None]
  - WEIGHT INCREASED [None]
